FAERS Safety Report 8461330-X (Version None)
Quarter: 2012Q2

REPORT INFORMATION
  Report Type: 
  Country: None (occurrence: None)
  Receive Date: 20120323
  Receipt Date: 20111122
  Transmission Date: 20120825
  Serious: Yes (Hospitalization)
  Sender: FDA-Public Use
  Company Number: 163-21880-11091534

PATIENT
  Age: 52 Year
  Sex: Male
  Weight: 84.4 kg

DRUGS (4)
  1. REVLIMID [Suspect]
     Indication: MULTIPLE MYELOMA
     Dosage: 15 MG, DAILY X 14 DAYS, 7 DAYS OFF,PO
     Route: 048
     Dates: start: 20110602
  2. DEXAMETHASONE [Concomitant]
  3. VELCADE [Concomitant]
  4. ANTIBIOTICS(ANTIBIOTICS) [Suspect]
     Indication: PRODUCT USED FOR UNKNOWN INDICATION

REACTIONS (2)
  - RASH [None]
  - PNEUMONIA [None]
